FAERS Safety Report 6855002-2 (Version None)
Quarter: 2010Q3

REPORT INFORMATION
  Report Type: 
  Country: None (occurrence: None)
  Receive Date: 20100717
  Receipt Date: 20080610
  Transmission Date: 20110219
  Serious: Yes (Other)
  Sender: FDA-Public Use
  Company Number: US-PFIZER INC-2007103013

PATIENT
  Sex: Female
  Weight: 76.7 kg

DRUGS (6)
  1. CHANTIX [Suspect]
     Indication: SMOKING CESSATION THERAPY
     Dates: start: 20071001, end: 20070101
  2. VERAPAMIL [Concomitant]
  3. CLONAZEPAM [Concomitant]
  4. TRIAMTERENE AND HYDROCHLOROTHIAZIDE [Concomitant]
  5. IBUPROFEN [Concomitant]
  6. HYDROCHLOROTHIAZIDE [Concomitant]

REACTIONS (7)
  - ABDOMINAL PAIN UPPER [None]
  - ABNORMAL DREAMS [None]
  - CHEST PAIN [None]
  - DYSPHAGIA [None]
  - HYPOREFLEXIA [None]
  - MYOCARDIAL INFARCTION [None]
  - NAUSEA [None]
